FAERS Safety Report 5168911-X (Version None)
Quarter: 2006Q4

REPORT INFORMATION
  Report Type: 
  Country: None (occurrence: None)
  Receive Date: 20061211
  Receipt Date: 20060831
  Transmission Date: 20070319
  Serious: Yes (Other)
  Sender: FDA-Public Use
  Company Number: PHFR2006GB02706

PATIENT
  Sex: Female

DRUGS (1)
  1. ZOMETA [Suspect]
     Indication: HYPERCALCAEMIA
     Route: 065

REACTIONS (4)
  - BONE LESION [None]
  - CONDITION AGGRAVATED [None]
  - OSTEONECROSIS [None]
  - RADIATION INJURY [None]
